FAERS Safety Report 19066417 (Version 1)
Quarter: 2021Q1

REPORT INFORMATION
  Report Type: Spontaneous
  Country: NL (occurrence: NL)
  Receive Date: 20210328
  Receipt Date: 20210328
  Transmission Date: 20210420
  Serious: Yes (Death, Life-Threatening, Hospitalization)
  Sender: FDA-Public Use
  Company Number: NL-TEVA-2021-NL-1893346

PATIENT
  Age: 77 Year
  Sex: Male
  Weight: 64 kg

DRUGS (4)
  1. DOCETAXEL INFOPL CONC 20MG/ML / BRAND NAME NOT SPECIFIED [Suspect]
     Active Substance: DOCETAXEL
     Indication: PROSTATE CANCER METASTATIC
     Dosage: 1X PER DAY 150 MG IN NACL 0.9%:THERAPY END DATE :ASKED BUT UNKNOWN
     Dates: start: 20201119
  2. FLUCLOXACILLINE PDR V INJVLST 1000MG / FLOXAPEN INJECTIEPOEDER FLACON [Concomitant]
     Dosage: 1000 MG (MILLIGRAM):THERAPY START DATE:ASKED BUT UNKNOWN:THERAPY END DATE :ASKED BUT UNKNOWN
  3. FLUCONAZOL SUSP ORAAL 10MG/ML / BRAND NAME NOT SPECIFIED [Concomitant]
     Dosage: 10 MG / ML (MILLIGRAMS PER MILLILITER):THERAPY START DATE:ASKED BUT UNKNOWN:THERAPY END DATE :ASKED
  4. VANCOMYCINE PDR V INFVLST 1000MG / BRAND NAME NOT SPECIFIED [Concomitant]
     Active Substance: VANCOMYCIN
     Dosage: 1000 MG (MILLIGRAMS):THERAPY START DATE:ASKED BUT UNKNOWN:THERAPY END DATE :ASKED BUT UNKNOWN

REACTIONS (1)
  - Interstitial lung disease [Fatal]

NARRATIVE: CASE EVENT DATE: 20210112
